FAERS Safety Report 20996651 (Version 6)
Quarter: 2023Q1

REPORT INFORMATION
  Report Type: Report from Study
  Country: US (occurrence: US)
  Receive Date: 20220623
  Receipt Date: 20230125
  Transmission Date: 20230418
  Serious: Yes (Hospitalization)
  Sender: FDA-Public Use
  Company Number: US-NOVARTISTESTPH-NVSC2022US142896

PATIENT
  Sex: Female

DRUGS (2)
  1. KESIMPTA [Suspect]
     Active Substance: OFATUMUMAB
     Indication: Multiple sclerosis
     Dosage: UNK
     Route: 058
  2. KESIMPTA [Suspect]
     Active Substance: OFATUMUMAB
     Indication: Clinically isolated syndrome
     Dosage: UNK, QMO
     Route: 058
     Dates: start: 20220828

REACTIONS (6)
  - Multiple sclerosis relapse [Recovering/Resolving]
  - Fatigue [Unknown]
  - Hypoaesthesia [Unknown]
  - Balance disorder [Unknown]
  - Sensitivity to weather change [Unknown]
  - Injection site pain [Unknown]
